FAERS Safety Report 4415824-4 (Version None)
Quarter: 2004Q3

REPORT INFORMATION
  Report Type: 
  Country: None (occurrence: None)
  Receive Date: 20040729
  Receipt Date: 20040726
  Transmission Date: 20050211
  Serious: Yes (Hospitalization)
  Sender: FDA-Public Use
  Company Number: TPA2004A00714

PATIENT
  Age: 36 Year
  Sex: Female
  Weight: 93.8946 kg

DRUGS (12)
  1. ACTOS [Suspect]
     Indication: DIABETES MELLITUS NON-INSULIN-DEPENDENT
     Dosage: 45 MG, 1 IN 1 D, PER ORAL
     Route: 048
  2. ACTOS [Suspect]
     Indication: HYPERINSULINAEMIA
     Dosage: 45 MG, 1 IN 1 D, PER ORAL
     Route: 048
  3. GLUCOPHAGE (METROMIN HYDROCHLORIDE) [Concomitant]
  4. AMBIEN [Concomitant]
  5. BUSPAR [Concomitant]
  6. CLONAZEPAM [Concomitant]
  7. LEXAPRO [Concomitant]
  8. LEVBID (HYOSCYAMINE SULFATE) [Concomitant]
  9. TIGAN [Concomitant]
  10. ESTRACE [Concomitant]
  11. LORTAB [Concomitant]
  12. DARVOCET [Concomitant]

REACTIONS (3)
  - FIBROMYALGIA [None]
  - HYSTERECTOMY [None]
  - INTERVERTEBRAL DISC PROTRUSION [None]
